FAERS Safety Report 7163494-7 (Version None)
Quarter: 2010Q4

REPORT INFORMATION
  Report Type: 
  Country: None (occurrence: None)
  Receive Date: 20101215
  Receipt Date: 20100428
  Transmission Date: 20110411
  Serious: Yes (Hospitalization)
  Sender: FDA-Public Use
  Company Number: FR-PFIZER INC-2010053618

PATIENT
  Age: 62 Year
  Sex: Female

DRUGS (7)
  1. LYRICA [Suspect]
     Dosage: 300 MG, 3X/DAY
     Route: 048
  2. ALPRAZOLAM [Suspect]
     Dosage: 0.5 MG, 2X/DAY
     Route: 048
  3. LYSANXIA [Suspect]
     Dosage: 1 DF, 1X/DAY
     Route: 048
  4. LIORESAL [Suspect]
     Dosage: 60 MG, UNK
     Route: 048
  5. MEPRONIZINE [Suspect]
     Dosage: 1 DF, 1X/DAY
     Route: 048
  6. SEROPRAM [Suspect]
     Dosage: 3 DF, 1X/DAY
     Route: 048
  7. MORPHINE SULFATE [Suspect]
     Route: 048

REACTIONS (4)
  - COMA [None]
  - HYPOXIA [None]
  - MIOSIS [None]
  - TOXIC ENCEPHALOPATHY [None]
